FAERS Safety Report 5961633-4 (Version None)
Quarter: 2008Q4

REPORT INFORMATION
  Report Type: 
  Country: None (occurrence: None)
  Receive Date: 20081119
  Receipt Date: 20081106
  Transmission Date: 20090506
  Serious: Yes (Hospitalization)
  Sender: FDA-Public Use
  Company Number: 08P-167-0486120-00

PATIENT
  Age: 8 Month
  Sex: Female

DRUGS (1)
  1. SYNAGIS [Suspect]
     Dates: start: 20081001

REACTIONS (4)
  - CARDIAC DISORDER [None]
  - INFECTION SUSCEPTIBILITY INCREASED [None]
  - LUNG DISORDER [None]
  - REGURGITATION [None]
